FAERS Safety Report 7490049-7 (Version None)
Quarter: 2011Q2

REPORT INFORMATION
  Report Type: 
  Country: None (occurrence: None)
  Receive Date: 20110512
  Receipt Date: 20110429
  Transmission Date: 20111010
  Serious: Yes (Hospitalization)
  Sender: FDA-Public Use
  Company Number: 2011050034

PATIENT
  Age: 48 Year
  Sex: Female

DRUGS (3)
  1. RAMIPRIL [Suspect]
     Indication: SUICIDE ATTEMPT
     Dosage: 300 MG (10 MG, 30 IN 1 TOTAL), ORAL
     Route: 048
     Dates: start: 20110316, end: 20110316
  2. TORSEMIDE [Suspect]
     Indication: SUICIDE ATTEMPT
     Dosage: 50 MG (5 MG, 10 IN 1 TOTAL), ORAL
     Route: 048
     Dates: start: 20110316, end: 20110316
  3. MIDAZOLAM HCL [Suspect]
     Indication: SUICIDE ATTEMPT
     Dosage: 75 MG (7.5 MG, 10 IN 1 TOTAL), ORAL
     Route: 048
     Dates: start: 20110316, end: 20110316

REACTIONS (13)
  - DRUG ABUSE [None]
  - POLYURIA [None]
  - CONFUSIONAL STATE [None]
  - SPEECH DISORDER [None]
  - AGITATION [None]
  - COMA [None]
  - SUICIDE ATTEMPT [None]
  - BLOOD CREATININE INCREASED [None]
  - PHYSICAL EXAMINATION ABNORMAL [None]
  - DEHYDRATION [None]
  - MULTIPLE DRUG OVERDOSE [None]
  - ELECTROENCEPHALOGRAM ABNORMAL [None]
  - TOXICITY TO VARIOUS AGENTS [None]
